FAERS Safety Report 13942310 (Version 1)
Quarter: 2017Q3

REPORT INFORMATION
  Report Type: Spontaneous
  Country: US (occurrence: None)
  Receive Date: 20170907
  Receipt Date: 20170907
  Transmission Date: 20171127
  Serious: Yes (Death)
  Sender: FDA-Public Use
  Company Number: None

PATIENT
  Age: 75 Year
  Sex: Female

DRUGS (1)
  1. SILDENAFIL 20MG AUROBINDO [Suspect]
     Active Substance: SILDENAFIL
     Indication: COR PULMONALE
     Dosage: 3 TABS TID BY MOUTH
     Route: 048
     Dates: start: 20170609

REACTIONS (1)
  - Death [None]

NARRATIVE: CASE EVENT DATE: 201709
